FAERS Safety Report 9189696 (Version 3)
Quarter: 2013Q3

REPORT INFORMATION
  Report Type: Spontaneous
  Country: US (occurrence: US)
  Receive Date: 20130326
  Receipt Date: 20130724
  Transmission Date: 20140515
  Serious: Yes (Hospitalization)
  Sender: FDA-Public Use
  Company Number: US-BAYER-2013-037613

PATIENT
  Age: 48 Year
  Sex: Female
  Weight: 68.03 kg

DRUGS (28)
  1. YAZ [Suspect]
     Indication: ACNE
     Dosage: UNK
     Dates: start: 2005
  2. YAZ [Suspect]
     Indication: PREMENSTRUAL SYNDROME
  3. YASMIN [Suspect]
     Indication: ACNE
     Dosage: UNK
     Dates: start: 2005
  4. YASMIN [Suspect]
     Indication: MENOPAUSAL SYMPTOMS
  5. SYNTHROID [Concomitant]
  6. FLUCONAZOLE [Concomitant]
  7. AZITHROMYCIN [Concomitant]
  8. GLYCOLAX [Concomitant]
  9. FLURAZEPAM [Concomitant]
  10. XANAX [Concomitant]
  11. CRANTEX LA [Concomitant]
  12. SULFAMETHOXAZOLE W/TRIMETHOPRIM [Concomitant]
  13. ALPRAZOLAM [Concomitant]
  14. METHYLPREDNISOLONE [Concomitant]
  15. BIAXIN XL [Concomitant]
  16. ENDAL EXPECTORANT [Concomitant]
  17. TUSSIONEX PENNKINETIC [Concomitant]
  18. DIAZEPAM [Concomitant]
  19. LIPITOR [Concomitant]
  20. TENORMIN [Concomitant]
  21. PRINIVIL [Concomitant]
  22. ROCEPHIN [Concomitant]
  23. ZITHROMAX [Concomitant]
  24. DILAUDID [Concomitant]
  25. PERCOCET [Concomitant]
  26. PARAFON FORTE [Concomitant]
  27. AUGMENTIN [Concomitant]
  28. LEVOTHYROXINE [Concomitant]

REACTIONS (5)
  - Injury [None]
  - Pain [None]
  - Pain [None]
  - Pulmonary embolism [Recovered/Resolved]
  - Off label use [None]
